FAERS Safety Report 20309827 (Version 2)
Quarter: 2022Q1

REPORT INFORMATION
  Report Type: Spontaneous
  Country: CA (occurrence: CA)
  Receive Date: 20220107
  Receipt Date: 20220111
  Transmission Date: 20220423
  Serious: Yes (Hospitalization, Other)
  Sender: FDA-Public Use
  Company Number: CA-BRISTOL-MYERS SQUIBB COMPANY-BMS-2022-001963

PATIENT
  Age: 77 Year
  Sex: Female

DRUGS (11)
  1. ELIQUIS [Suspect]
     Active Substance: APIXABAN
     Indication: Cerebrovascular accident prophylaxis
     Dosage: 5 MILLIGRAM
     Route: 048
  2. BISOPROLOL [Concomitant]
     Active Substance: BISOPROLOL
     Indication: Product used for unknown indication
     Route: 065
  3. CEFTRIAXONE [Concomitant]
     Active Substance: CEFTRIAXONE
     Indication: Product used for unknown indication
     Route: 030
  4. FUROSEMIDE [Concomitant]
     Active Substance: FUROSEMIDE
     Indication: Product used for unknown indication
     Route: 065
  5. LORATADINE [Concomitant]
     Active Substance: LORATADINE
     Indication: Product used for unknown indication
     Route: 065
  6. PANTOPRAZOLE [Concomitant]
     Active Substance: PANTOPRAZOLE
     Indication: Product used for unknown indication
     Route: 065
  7. PENICILLIN G PROCAINE [Concomitant]
     Active Substance: PENICILLIN G PROCAINE
     Indication: Product used for unknown indication
     Route: 065
  8. POTASSIUM CHLORIDE [Concomitant]
     Active Substance: POTASSIUM CHLORIDE
     Indication: Product used for unknown indication
     Route: 065
  9. VITAMIN D NOS [Concomitant]
     Active Substance: VITAMIN D NOS
     Indication: Cerebrovascular accident prophylaxis
     Route: 065
  10. VITAMIN D NOS [Concomitant]
     Active Substance: VITAMIN D NOS
     Indication: Atrial fibrillation
  11. VITAMIN D NOS [Concomitant]
     Active Substance: VITAMIN D NOS
     Indication: Anticoagulant therapy

REACTIONS (1)
  - Neutropenia [Unknown]
